FAERS Safety Report 19686454 (Version 1)
Quarter: 2021Q3

REPORT INFORMATION
  Report Type: Report from Study
  Country: US (occurrence: US)
  Receive Date: 20210811
  Receipt Date: 20210811
  Transmission Date: 20211014
  Serious: Yes (Death)
  Sender: FDA-Public Use
  Company Number: US-PFIZER INC-2021845765

PATIENT

DRUGS (4)
  1. CISPLATIN. [Suspect]
     Active Substance: CISPLATIN
     Indication: MEDULLOBLASTOMA
     Dosage: 75 MG/M2, CYCLIC EVERY 6 WEEKS
     Route: 042
  2. VINCRISTINE SULFATE. [Suspect]
     Active Substance: VINCRISTINE SULFATE
     Indication: MEDULLOBLASTOMA
     Dosage: 1.5 MG/M2 (UP TO A MAXIMUM DOSE OF 2 MG), WEEKLY A TOTAL OF EIGHT DOSES
     Route: 042
  3. VINCRISTINE SULFATE. [Suspect]
     Active Substance: VINCRISTINE SULFATE
     Dosage: 1.5 MG/M2  (UP TO A MAXIMUM DOSE OF 2 MG), CYCLIC, WEEKLY FOR 3 CONSECUTIVE WEEKS
     Route: 042
  4. LOMUSTINE. [Suspect]
     Active Substance: LOMUSTINE
     Indication: MEDULLOBLASTOMA
     Dosage: 75 MG/M2, CYCLIC
     Route: 048

REACTIONS (2)
  - Pneumonia bacterial [Fatal]
  - Sepsis [Fatal]
